FAERS Safety Report 4830710-3 (Version None)
Quarter: 2005Q4

REPORT INFORMATION
  Report Type: 
  Country: None (occurrence: None)
  Receive Date: 20051115
  Receipt Date: 20051107
  Transmission Date: 20060501
  Serious: Yes (Hospitalization)
  Sender: FDA-Public Use
  Company Number: 216512

PATIENT
  Age: 69 Year
  Sex: Male

DRUGS (1)
  1. RITUXAN [Suspect]
     Indication: NON-HODGKIN'S LYMPHOMA
     Dosage: 375MG/M2, 1 WEEK, INTRAVENOUS
     Route: 042
     Dates: start: 20050225, end: 20050524

REACTIONS (1)
  - C-REACTIVE PROTEIN INCREASED [None]
